FAERS Safety Report 7564058-3 (Version None)
Quarter: 2011Q2

REPORT INFORMATION
  Report Type: 
  Country: None (occurrence: None)
  Receive Date: 20110622
  Receipt Date: 20110617
  Transmission Date: 20111010
  Serious: Yes (Other)
  Sender: FDA-Public Use
  Company Number: JP-SANOFI-AVENTIS-2011SA038850

PATIENT
  Age: 13 Year
  Sex: Male
  Weight: 44 kg

DRUGS (15)
  1. ANTI-THYMOCYTE GLOBULIN NOS [Concomitant]
     Indication: ACUTE LYMPHOCYTIC LEUKAEMIA RECURRENT
     Route: 042
     Dates: start: 20110326, end: 20110329
  2. MANNIGEN [Concomitant]
     Indication: PROPHYLAXIS
     Route: 042
     Dates: end: 20110325
  3. RASURITEK INTRAVENOUS [Suspect]
     Indication: HYPERURICAEMIA
     Route: 041
     Dates: start: 20110323, end: 20110326
  4. FLUDARABINE PHOSPHATE [Concomitant]
     Indication: ACUTE LYMPHOCYTIC LEUKAEMIA RECURRENT
     Route: 042
     Dates: start: 20110326, end: 20110401
  5. URSO 250 [Concomitant]
     Indication: PROPHYLAXIS
     Route: 048
  6. ATARAX [Concomitant]
     Indication: ADVERSE EVENT
     Route: 042
     Dates: start: 20110424, end: 20110424
  7. SOLU-CORTEF [Concomitant]
     Indication: ADVERSE EVENT
     Route: 042
     Dates: start: 20110325
  8. FUNGUARD [Concomitant]
     Indication: PROPHYLAXIS
     Route: 042
  9. ALL OTHER THERAPEUTIC PRODUCTS [Concomitant]
     Indication: PROPHYLAXIS
     Dosage: 3-4 TABLETS
     Route: 048
  10. KEITEN [Concomitant]
     Indication: ADVERSE EVENT
     Route: 042
     Dates: start: 20110325
  11. BACCIDAL [Concomitant]
     Indication: PROPHYLAXIS
     Dosage: 3-4 TABLETS
     Route: 048
  12. ALKERAN [Concomitant]
     Indication: ACUTE LYMPHOCYTIC LEUKAEMIA RECURRENT
     Route: 042
     Dates: start: 20110330, end: 20110401
  13. FRAGMIN [Concomitant]
     Indication: PROPHYLAXIS
     Route: 042
     Dates: start: 20110323
  14. KYTRIL [Concomitant]
     Indication: PROPHYLAXIS
     Route: 042
     Dates: start: 20110101
  15. HALIZON [Concomitant]
     Indication: PROPHYLAXIS
     Route: 048

REACTIONS (2)
  - LYMPHOCYTE COUNT DECREASED [None]
  - WHITE BLOOD CELL COUNT DECREASED [None]
